FAERS Safety Report 6034934-1 (Version None)
Quarter: 2009Q1

REPORT INFORMATION
  Report Type: 
  Country: None (occurrence: None)
  Receive Date: 20090108
  Receipt Date: 20090108
  Transmission Date: 20090719
  Serious: Yes (Other)
  Sender: FDA-Public Use
  Company Number: None

PATIENT
  Age: 59 Year
  Sex: Female
  Weight: 56.7 kg

DRUGS (4)
  1. BUPROPION HCL [Suspect]
     Indication: DEPRESSION
     Dosage: 200 MG BID PO
     Route: 048
  2. KLONOPIN [Concomitant]
  3. SYNTHROID [Concomitant]
  4. ADDERALL 10 [Concomitant]

REACTIONS (7)
  - ABDOMINAL PAIN UPPER [None]
  - BALANCE DISORDER [None]
  - CONFUSIONAL STATE [None]
  - DISORIENTATION [None]
  - DISTURBANCE IN ATTENTION [None]
  - HYPOAESTHESIA [None]
  - PRODUCT QUALITY ISSUE [None]
